FAERS Safety Report 7296543-6 (Version None)
Quarter: 2011Q1

REPORT INFORMATION
  Report Type: 
  Country: None (occurrence: None)
  Receive Date: 20110216
  Receipt Date: 20110204
  Transmission Date: 20110831
  Serious: Yes (Hospitalization)
  Sender: FDA-Public Use
  Company Number: PHHY2011US04318

PATIENT
  Sex: Female

DRUGS (5)
  1. NAPROXEN [Concomitant]
  2. TYLENOL [Concomitant]
  3. ALEVE [Concomitant]
  4. RECLAST [Suspect]
  5. ASPIRIN [Concomitant]

REACTIONS (4)
  - CHEST PAIN [None]
  - MUSCULOSKELETAL CHEST PAIN [None]
  - CHILLS [None]
  - COSTOCHONDRITIS [None]
